FAERS Safety Report 10801408 (Version 3)
Quarter: 2015Q1

REPORT INFORMATION
  Report Type: Spontaneous
  Country: JP (occurrence: JP)
  Receive Date: 20150217
  Receipt Date: 20150226
  Transmission Date: 20150721
  Serious: Yes (Hospitalization, Other)
  Sender: FDA-Public Use
  Company Number: JP-009507513-1502JPN006759

PATIENT
  Age: 87 Year
  Sex: Male

DRUGS (5)
  1. REPAGLINIDE. [Concomitant]
     Active Substance: REPAGLINIDE
     Dosage: 1 MG, QD
     Dates: start: 201408, end: 2014
  2. GLACTIV [Suspect]
     Active Substance: SITAGLIPTIN
     Indication: TYPE 2 DIABETES MELLITUS
     Dosage: 100 MG, QD
     Route: 048
     Dates: start: 201401, end: 201408
  3. TENELIGLIPTIN HYDROBROMIDE [Concomitant]
     Dosage: 20 MG, QD
     Dates: start: 201408, end: 2014
  4. GLACTIV [Suspect]
     Active Substance: SITAGLIPTIN
     Dosage: 50 MG, QD
     Route: 048
     Dates: start: 2014, end: 2014
  5. PREDNISOLONE. [Concomitant]
     Active Substance: PREDNISOLONE
     Dosage: 15 MG, QD
     Dates: start: 20140902

REACTIONS (4)
  - Seronegative arthritis [Recovering/Resolving]
  - Hyperglycaemia [Unknown]
  - Gastric cancer [Unknown]
  - Hepatic function abnormal [Unknown]

NARRATIVE: CASE EVENT DATE: 2014
